FAERS Safety Report 25284962 (Version 2)
Quarter: 2025Q3

REPORT INFORMATION
  Report Type: Report from Study
  Country: US (occurrence: US)
  Receive Date: 20250508
  Receipt Date: 20250828
  Transmission Date: 20251020
  Serious: Yes (Death, Other)
  Sender: MERCK SHARP & DOHME LLC
  Company Number: US-009507513-2282022

PATIENT
  Age: 66 Year
  Sex: Female
  Weight: 62.6 kg

DRUGS (50)
  1. WINREVAIR [Suspect]
     Active Substance: SOTATERCEPT-CSRK
     Indication: Product used for unknown indication
     Dosage: 1/21
     Route: 065
     Dates: start: 20240715
  2. WINREVAIR [Suspect]
     Active Substance: SOTATERCEPT-CSRK
  3. WINREVAIR [Suspect]
     Active Substance: SOTATERCEPT-CSRK
  4. WINREVAIR [Suspect]
     Active Substance: SOTATERCEPT-CSRK
  5. REMODULIN [Suspect]
     Active Substance: TREPROSTINIL
     Indication: Pulmonary arterial hypertension
     Route: 058
     Dates: start: 20140305
  6. ZYRTEC [Concomitant]
     Active Substance: CETIRIZINE HYDROCHLORIDE
  7. ZYPREXA [Concomitant]
     Active Substance: OLANZAPINE
  8. FLUTICASONE PROPIONATE [Concomitant]
     Active Substance: FLUTICASONE PROPIONATE
  9. LIPITOR [Concomitant]
     Active Substance: ATORVASTATIN CALCIUM
  10. MYCOPHENOLIC ACID [Concomitant]
     Active Substance: MYCOPHENOLIC ACID
  11. OMEPRAZOLE [Concomitant]
     Active Substance: OMEPRAZOLE
  12. SYNTHROID [Concomitant]
     Active Substance: LEVOTHYROXINE SODIUM
  13. FUROSEMIDE [Concomitant]
     Active Substance: FUROSEMIDE
  14. LEVOCETIRIZINE DIHYDROCHLORIDE [Concomitant]
     Active Substance: LEVOCETIRIZINE DIHYDROCHLORIDE
  15. MIDODRINE HYDROCHLORIDE [Concomitant]
     Active Substance: MIDODRINE HYDROCHLORIDE
  16. TYLENOL [Concomitant]
     Active Substance: ACETAMINOPHEN
  17. FOLIC ACID [Concomitant]
     Active Substance: FOLIC ACID
  18. PROBIOTICS NOS [Concomitant]
     Active Substance: PROBIOTICS NOS
  19. CALCIUM\CHOLECALCIFEROL [Concomitant]
     Active Substance: CALCIUM\CHOLECALCIFEROL
  20. PFIZER-BIONTECH COVID-19 VACCINE [Concomitant]
     Active Substance: TOZINAMERAN
  21. INFED [Concomitant]
     Active Substance: IRON DEXTRAN
  22. OPSUMIT [Concomitant]
     Active Substance: MACITENTAN
  23. TRANSDERM SCOP [Concomitant]
     Active Substance: SCOPOLAMINE
  24. MOTRIN IB [Concomitant]
     Active Substance: IBUPROFEN
  25. PREVNAR [Concomitant]
     Active Substance: PNEUMOCOCCAL 7-VALENT CONJUGATE VACCINE (DIPHTHERIA CRM197 PROTEIN)
  26. PROMETHAZINE HYDROCHLORIDE [Concomitant]
     Active Substance: PROMETHAZINE HYDROCHLORIDE
  27. TRIAMCINOLONE [Concomitant]
     Active Substance: TRIAMCINOLONE
  28. VITAMIN B12 [Concomitant]
     Active Substance: CYANOCOBALAMIN
  29. VITAMIN D2 [Concomitant]
     Active Substance: ERGOCALCIFEROL
  30. TRAMADOL HCL [Concomitant]
     Active Substance: TRAMADOL HYDROCHLORIDE
  31. BENZONATATE [Concomitant]
     Active Substance: BENZONATATE
  32. CLARITIN [Concomitant]
     Active Substance: LORATADINE
  33. PROMETHAZINE DM [Concomitant]
     Active Substance: DEXTROMETHORPHAN HYDROBROMIDE\PROMETHAZINE HYDROCHLORIDE
  34. MUCINEX [Concomitant]
     Active Substance: GUAIFENESIN
  35. POTASSIUM CHLORIDE [Concomitant]
     Active Substance: POTASSIUM CHLORIDE
  36. OXYGEN [Concomitant]
     Active Substance: OXYGEN
  37. CULTURELLE [Concomitant]
     Active Substance: LACTOBACILLUS RHAMNOSUS
  38. FERROUS GLUCONATE [Concomitant]
     Active Substance: FERROUS GLUCONATE
  39. REVATIO [Concomitant]
     Active Substance: SILDENAFIL CITRATE
  40. RECLAST [Concomitant]
     Active Substance: ZOLEDRONIC ACID
  41. SHINGRIX [Concomitant]
     Active Substance: RECOMBINANT VARICELLA ZOSTER VIRUS (VZV) GLYCOPROTEIN E
  42. ACETAMINOPHEN\DEXTROMETHORPHAN\PSEUDOEPHEDRINE [Concomitant]
     Active Substance: ACETAMINOPHEN\DEXTROMETHORPHAN\PSEUDOEPHEDRINE
  43. ASPIRIN [Concomitant]
     Active Substance: ASPIRIN
  44. GABAPENTIN [Concomitant]
     Active Substance: GABAPENTIN
  45. DOXYCYCLINE HYCLATE [Concomitant]
     Active Substance: DOXYCYCLINE HYCLATE
  46. ONDANSETRON [Concomitant]
     Active Substance: ONDANSETRON
  47. AZITHROMYCIN [Concomitant]
     Active Substance: AZITHROMYCIN
  48. AMLODIPINE BESYLATE [Concomitant]
     Active Substance: AMLODIPINE BESYLATE
  49. SODIUM CHLORIDE [Concomitant]
     Active Substance: SODIUM CHLORIDE
  50. BACTRIM DS [Concomitant]
     Active Substance: SULFAMETHOXAZOLE\TRIMETHOPRIM

REACTIONS (1)
  - Death [Fatal]

NARRATIVE: CASE EVENT DATE: 20250419
